FAERS Safety Report 7640069-4 (Version None)
Quarter: 2011Q3

REPORT INFORMATION
  Report Type: 
  Country: None (occurrence: None)
  Receive Date: 20110727
  Receipt Date: 20110718
  Transmission Date: 20111222
  Serious: Yes (Disabling)
  Sender: FDA-Public Use
  Company Number: US-ASTRAZENECA-2011SE29557

PATIENT
  Age: 1071 Month
  Sex: Female
  Weight: 77.1 kg

DRUGS (5)
  1. SEROQUEL [Suspect]
     Indication: ANXIETY
     Route: 048
     Dates: start: 20110511, end: 20110512
  2. SEROQUEL [Suspect]
     Indication: INSOMNIA
     Route: 048
     Dates: start: 20110511, end: 20110512
  3. SEROQUEL [Suspect]
     Indication: SLEEP DISORDER
     Route: 048
     Dates: start: 20110511, end: 20110512
  4. SEROQUEL [Suspect]
     Indication: DEPRESSION
     Route: 048
     Dates: start: 20110511, end: 20110512
  5. FIORICET [Concomitant]
     Indication: HEADACHE
     Dosage: 1-4 PER DAY
     Route: 048
     Dates: start: 19991201

REACTIONS (6)
  - TRISMUS [None]
  - LIP SWELLING [None]
  - OFF LABEL USE [None]
  - DIPLEGIA [None]
  - HALLUCINATION [None]
  - SWOLLEN TONGUE [None]
